FAERS Safety Report 25990412 (Version 1)
Quarter: 2025Q4

REPORT INFORMATION
  Report Type: Spontaneous
  Country: US (occurrence: US)
  Receive Date: 20251103
  Receipt Date: 20251103
  Transmission Date: 20260119
  Serious: Yes (Other)
  Sender: INSUD PHARMA
  Company Number: US-INSUD PHARMA-2510US08772

PATIENT

DRUGS (4)
  1. MEDROXYPROGESTERONE ACETATE [Suspect]
     Active Substance: MEDROXYPROGESTERONE ACETATE
     Indication: Contraception
     Dosage: 150 MG/1 ML, SINGLE DOSE
     Route: 030
     Dates: start: 20250517, end: 20250517
  2. MEDROXYPROGESTERONE ACETATE [Suspect]
     Active Substance: MEDROXYPROGESTERONE ACETATE
     Dosage: 150 MG/1 ML, SINGLE DOSE
     Route: 030
     Dates: start: 20250301, end: 20250301
  3. MEDROXYPROGESTERONE ACETATE [Suspect]
     Active Substance: MEDROXYPROGESTERONE ACETATE
     Dosage: 150 MG/1 ML, SINGLE DOSE
     Route: 030
     Dates: start: 20241207, end: 20241207
  4. MEDROXYPROGESTERONE ACETATE [Suspect]
     Active Substance: MEDROXYPROGESTERONE ACETATE
     Indication: Contraception
     Dosage: 150 MG/1 ML, SINGLE DOSE
     Route: 030
     Dates: start: 20250814, end: 20250814

REACTIONS (3)
  - Pregnancy with injectable contraceptive [Unknown]
  - Abnormal product of conception [Unknown]
  - Pelvic pain [Unknown]

NARRATIVE: CASE EVENT DATE: 20250919
